FAERS Safety Report 21409753 (Version 1)
Quarter: 2022Q4

REPORT INFORMATION
  Report Type: Report from Study
  Country: US (occurrence: US)
  Receive Date: 20221005
  Receipt Date: 20221005
  Transmission Date: 20230113
  Serious: Yes (Other)
  Sender: FDA-Public Use
  Company Number: US-ABBVIE-4137026

PATIENT
  Sex: Male

DRUGS (1)
  1. IMBRUVICA [Suspect]
     Active Substance: IBRUTINIB
     Indication: Chronic lymphocytic leukaemia
     Route: 048

REACTIONS (8)
  - Lymphatic system neoplasm [Unknown]
  - Haemoglobin decreased [Not Recovered/Not Resolved]
  - Cough [Not Recovered/Not Resolved]
  - Platelet count decreased [Not Recovered/Not Resolved]
  - Productive cough [Unknown]
  - Pain in extremity [Not Recovered/Not Resolved]
  - Thrombosis [Unknown]
  - Peripheral swelling [Not Recovered/Not Resolved]
